FAERS Safety Report 25355184 (Version 1)
Quarter: 2025Q2

REPORT INFORMATION
  Report Type: Spontaneous
  Country: RO (occurrence: RO)
  Receive Date: 20250524
  Receipt Date: 20250524
  Transmission Date: 20250717
  Serious: Yes (Other)
  Sender: CELLTRION
  Company Number: RO-ROCHE-10000130699

PATIENT

DRUGS (4)
  1. TRASTUZUMAB [Suspect]
     Active Substance: TRASTUZUMAB
     Indication: HER2 positive breast cancer
     Route: 065
  2. ADO-TRASTUZUMAB EMTANSINE [Suspect]
     Active Substance: ADO-TRASTUZUMAB EMTANSINE
     Indication: HER2 positive breast cancer
     Route: 065
  3. PERTUZUMAB [Suspect]
     Active Substance: PERTUZUMAB
     Indication: HER2 positive breast cancer
     Route: 065
  4. PACLITAXEL [Suspect]
     Active Substance: PACLITAXEL
     Indication: HER2 positive breast cancer
     Route: 065

REACTIONS (9)
  - Rotator cuff syndrome [Unknown]
  - Osteopenia [Unknown]
  - Myelosuppression [Unknown]
  - Febrile neutropenia [Unknown]
  - Oral fungal infection [Unknown]
  - Anaemia [Unknown]
  - Peripheral sensorimotor neuropathy [Unknown]
  - Diarrhoea [Unknown]
  - Arthritis [Unknown]

NARRATIVE: CASE EVENT DATE: 20220601
